FAERS Safety Report 8349438-0 (Version None)
Quarter: 2012Q2

REPORT INFORMATION
  Report Type: 
  Country: None (occurrence: None)
  Receive Date: 20120510
  Receipt Date: 20120507
  Transmission Date: 20120825
  Serious: Yes (Hospitalization, Other)
  Sender: FDA-Public Use
  Company Number: US-PFIZER INC-2012111858

PATIENT
  Sex: Female
  Weight: 115 kg

DRUGS (7)
  1. CHANTIX [Suspect]
     Dosage: 0.5 MG, 2X/DAY
     Dates: start: 20120330, end: 20120402
  2. CHANTIX [Suspect]
     Dosage: UNK
     Dates: end: 20120409
  3. TRAZODONE [Concomitant]
     Indication: INSOMNIA
     Dosage: 200 MG, DAILY AT NIGHT
  4. DIOVAN [Concomitant]
     Indication: HYPERTENSION
     Dosage: 320 MG, 1X/DAY
  5. CHANTIX [Suspect]
     Indication: SMOKING CESSATION THERAPY
     Dosage: 0.5 MG, 1X/DAY
     Dates: start: 20120327, end: 20120329
  6. CHANTIX [Suspect]
     Dosage: 1 MG, 2X/DAY
     Dates: start: 20120403, end: 20120409
  7. SERTRALINE [Concomitant]
     Indication: DEPRESSION
     Dosage: 150 MG, 1X/DAY

REACTIONS (7)
  - PSYCHOTIC DISORDER [None]
  - BLOOD POTASSIUM DECREASED [None]
  - MAJOR DEPRESSION [None]
  - METABOLIC ENCEPHALOPATHY [None]
  - HYPONATRAEMIA [None]
  - GASTROINTESTINAL HYPOMOTILITY [None]
  - BLOOD MAGNESIUM DECREASED [None]
